FAERS Safety Report 15332963 (Version 1)
Quarter: 2018Q3

REPORT INFORMATION
  Report Type: Spontaneous
  Country: ZA (occurrence: ZA)
  Receive Date: 20180830
  Receipt Date: 20180830
  Transmission Date: 20181010
  Serious: No
  Sender: FDA-Public Use
  Company Number: ZA-LUPIN PHARMACEUTICALS INC.-2017-06957

PATIENT
  Sex: Female

DRUGS (4)
  1. AMLOC TABLETS [Suspect]
     Active Substance: AMLODIPINE BESYLATE
     Indication: HYPERTENSION
     Dosage: 5 MG, QD
     Route: 048
     Dates: start: 20170901, end: 201709
  2. SYMBICORD [Concomitant]
     Active Substance: BUDESONIDE\FORMOTEROL
     Indication: ASTHMA
     Dosage: 80 MCG, QD
     Route: 048
  3. PUR?BLOKA [Concomitant]
     Active Substance: PROPRANOLOL HYDROCHLORIDE
     Indication: CARDIAC DISORDER
     Dosage: 40 MG, QD
     Route: 048
  4. PREMARIN [Concomitant]
     Active Substance: ESTROGENS, CONJUGATED
     Indication: HORMONE LEVEL ABNORMAL
     Dosage: 0.625 MG, QD
     Route: 048

REACTIONS (1)
  - Oedema [Recovered/Resolved]
